FAERS Safety Report 10050880 (Version 1)
Quarter: 2014Q2

REPORT INFORMATION
  Report Type: Spontaneous
  Country: US (occurrence: US)
  Receive Date: 20140401
  Receipt Date: 20140401
  Transmission Date: 20141212
  Serious: No
  Sender: FDA-Public Use
  Company Number: US-ROXANE LABORATORIES, INC.-2014-RO-00527RO

PATIENT
  Age: 63 Year
  Sex: Female
  Weight: 84 kg

DRUGS (1)
  1. PREDNISONE [Suspect]
     Indication: IDIOPATHIC PULMONARY FIBROSIS
     Dosage: 40 MG
     Route: 048
     Dates: start: 20140109

REACTIONS (1)
  - Insomnia [Unknown]
